FAERS Safety Report 6729905-3 (Version None)
Quarter: 2010Q2

REPORT INFORMATION
  Report Type: 
  Country: None (occurrence: None)
  Receive Date: 20100518
  Receipt Date: 20100505
  Transmission Date: 20101027
  Serious: Yes (Hospitalization)
  Sender: FDA-Public Use
  Company Number: PHEH2010US03361

PATIENT
  Sex: Male

DRUGS (9)
  1. DIOVAN HCT [Suspect]
     Dosage: 160/25 MG
     Dates: start: 20091001
  2. DIOVAN [Suspect]
     Dosage: UNK
     Dates: start: 20100329
  3. PRAVACHOL [Concomitant]
     Dosage: 40 MG, UNK
  4. QUINAPRIL [Concomitant]
     Dosage: 40 MG, UNK
  5. PREDNISONE [Concomitant]
     Dosage: 20 MG, 2 TABLETS DAILY
     Route: 048
     Dates: start: 20100328, end: 20100401
  6. TOPROL-XL [Concomitant]
     Dosage: 200 MG, 24 HOUR
  7. BENICAR HCT [Concomitant]
     Dosage: 40/25 MG
  8. CLONIDINE [Concomitant]
     Dosage: 0.1 MG, UNK
  9. LIPITOR [Concomitant]

REACTIONS (9)
  - CHAPPED LIPS [None]
  - CHEILITIS [None]
  - FLUSHING [None]
  - HYPERSENSITIVITY [None]
  - HYPERTENSION [None]
  - HYPOAESTHESIA ORAL [None]
  - HYPOPHAGIA [None]
  - LIP SWELLING [None]
  - SWELLING FACE [None]
